FAERS Safety Report 13228187 (Version 1)
Quarter: 2017Q1

REPORT INFORMATION
  Report Type: Spontaneous
  Country: US (occurrence: US)
  Receive Date: 20170213
  Receipt Date: 20170213
  Transmission Date: 20170428
  Serious: No
  Sender: FDA-Public Use
  Company Number: US-ROCHE-1829818

PATIENT
  Sex: Male

DRUGS (1)
  1. XOLAIR [Suspect]
     Active Substance: OMALIZUMAB
     Indication: PRODUCT USED FOR UNKNOWN INDICATION
     Dosage: 150 MG SUBCUTANEOUS  IN EACH ARM EVERY MONTH
     Route: 058
     Dates: start: 20160720, end: 20160822

REACTIONS (2)
  - Drug ineffective [Unknown]
  - No adverse event [Unknown]
